FAERS Safety Report 6745531-4 (Version None)
Quarter: 2010Q2

REPORT INFORMATION
  Report Type: 
  Country: None (occurrence: None)
  Receive Date: 20100528
  Receipt Date: 20100524
  Transmission Date: 20101027
  Serious: Yes (Other)
  Sender: FDA-Public Use
  Company Number: CN-JNJFOC-20090608598

PATIENT
  Sex: Female

DRUGS (2)
  1. DAKTARIN CREAM [Suspect]
     Route: 061
  2. DAKTARIN CREAM [Suspect]
     Indication: TINEA PEDIS
     Dosage: QUANTITY SUFFICIENT, USED EXTERNALLY
     Route: 061

REACTIONS (2)
  - ABORTION SPONTANEOUS [None]
  - DRUG EXPOSURE DURING PREGNANCY [None]
